FAERS Safety Report 8767111 (Version 1)
Quarter: 2012Q4

REPORT INFORMATION
  Report Type: 
  Country: HU (occurrence: HU)
  Receive Date: 20120904
  Receipt Date: 20120904
  Transmission Date: 20130627
  Serious: Yes (Life-Threatening, Hospitalization, Disabling)
  Sender: FDA-Public Use
  Company Number: HU-SANOFI-AVENTIS-2012SA060496

PATIENT
  Age: 64 Year
  Sex: Female

DRUGS (5)
  1. ENOXAPARIN SODIUM [Suspect]
     Indication: PAIN IN LIMB
     Dosage: total two injections
     Route: 058
  2. HYDROXYUREA [Concomitant]
     Indication: POLYCYTHAEMIA VERA
  3. DOXYCYCLINE [Concomitant]
     Indication: SEPTICEMIA
     Route: 048
  4. AMIKACIN [Concomitant]
     Indication: SEPTICEMIA
     Route: 042
  5. SALINE [Concomitant]

REACTIONS (9)
  - Heparin-induced thrombocytopenia [Recovered/Resolved]
  - Blood immunoglobulin G increased [Recovered/Resolved]
  - Thrombosis [Recovering/Resolving]
  - Oedema peripheral [Unknown]
  - Pain in extremity [Unknown]
  - Skin discolouration [Unknown]
  - Gangrene [Recovered/Resolved]
  - Skin necrosis [Recovered/Resolved]
  - Injection site reaction [Unknown]
